FAERS Safety Report 5036463-0 (Version None)
Quarter: 2006Q2

REPORT INFORMATION
  Report Type: 
  Country: None (occurrence: None)
  Receive Date: 20060626
  Receipt Date: 20060608
  Transmission Date: 20061013
  Serious: Yes (Death)
  Sender: FDA-Public Use
  Company Number: 225628

PATIENT
  Age: 70 Year
  Sex: Male

DRUGS (12)
  1. AVASTIN [Suspect]
     Indication: RECTAL CANCER
     Dosage: 502 MG, INTRAVENOUS
     Route: 042
     Dates: start: 20060119
  2. CAPECITABINE (CAPECITABINE) [Suspect]
     Indication: RECTAL CANCER
     Dosage: 3000 MG, QD, ORAL
     Route: 048
     Dates: start: 20060119
  3. INSULIN [Concomitant]
  4. RAMIPRIL [Concomitant]
  5. BISOPROLOL FUMARATE [Concomitant]
  6. ASPIRIN [Concomitant]
  7. PLAVIX [Concomitant]
  8. LERCANIDIPINE [Concomitant]
  9. XIPAMID (XIPAMIDE) [Concomitant]
  10. FUROSEMIDE [Concomitant]
  11. PANTOPRAZOLE SODIUM [Concomitant]
  12. GENERIC COMPONENT (S) NOT KNOWN [Concomitant]

REACTIONS (17)
  - AORTIC VALVE DISEASE [None]
  - BLOOD CREATINE PHOSPHOKINASE INCREASED [None]
  - BUNDLE BRANCH BLOCK RIGHT [None]
  - CORONARY ARTERY DISEASE [None]
  - CORONARY ARTERY STENOSIS [None]
  - EJECTION FRACTION DECREASED [None]
  - ELECTROCARDIOGRAM REPOLARISATION ABNORMALITY [None]
  - ELECTROCARDIOGRAM ST SEGMENT DEPRESSION [None]
  - OEDEMA PERIPHERAL [None]
  - PLEURAL EFFUSION [None]
  - PNEUMONIA [None]
  - PULMONARY CONGESTION [None]
  - RENAL IMPAIRMENT [None]
  - TACHYCARDIA [None]
  - TROPONIN INCREASED [None]
  - VENTRICULAR HYPERTROPHY [None]
  - VENTRICULAR HYPOKINESIA [None]
